FAERS Safety Report 14490981 (Version 1)
Quarter: 2018Q1

REPORT INFORMATION
  Report Type: Spontaneous
  Country: US (occurrence: US)
  Receive Date: 20180206
  Receipt Date: 20180206
  Transmission Date: 20180509
  Serious: No
  Sender: FDA-Public Use
  Company Number: US-BAYER-2018-020158

PATIENT
  Age: 67 Year
  Sex: Male
  Weight: 75 kg

DRUGS (2)
  1. MIRALAX [Suspect]
     Active Substance: POLYETHYLENE GLYCOL 3350
     Indication: GASTROINTESTINAL DISORDER
     Dosage: HIGHER DOSE
     Route: 048
     Dates: start: 2016
  2. MIRALAX [Suspect]
     Active Substance: POLYETHYLENE GLYCOL 3350
     Indication: COLONOSCOPY

REACTIONS (4)
  - Poor quality drug administered [Unknown]
  - Product use in unapproved indication [Unknown]
  - Off label use [Unknown]
  - Product odour abnormal [None]

NARRATIVE: CASE EVENT DATE: 2016
